FAERS Safety Report 4689175-7 (Version None)
Quarter: 2005Q2

REPORT INFORMATION
  Report Type: 
  Country: None (occurrence: None)
  Receive Date: 20050613
  Receipt Date: 20050601
  Transmission Date: 20051028
  Serious: Yes (Other)
  Sender: FDA-Public Use
  Company Number: 2005UW08408

PATIENT
  Age: 63 Year
  Sex: Female

DRUGS (7)
  1. CRESTOR [Suspect]
     Indication: BLOOD CHOLESTEROL INCREASED
     Route: 048
     Dates: start: 20030101
  2. PRAVACHOL [Concomitant]
     Indication: BLOOD CHOLESTEROL INCREASED
  3. OXYCODONE HCL [Concomitant]
     Indication: PAIN
  4. LORAZEPAM [Concomitant]
     Indication: SLEEP DISORDER
  5. NOVAMILOR [Concomitant]
     Indication: HYPERTENSION
     Route: 048
  6. FLURINAL [Concomitant]
     Indication: MIGRAINE
  7. ZYBAN [Concomitant]
     Indication: SMOKING CESSATION THERAPY
     Dates: start: 20040101

REACTIONS (4)
  - ASTHENIA [None]
  - FATIGUE [None]
  - MYALGIA [None]
  - OVARIAN CANCER [None]
